FAERS Safety Report 5613593-3 (Version None)
Quarter: 2008Q1

REPORT INFORMATION
  Report Type: 
  Country: None (occurrence: None)
  Receive Date: 20080205
  Receipt Date: 20080129
  Transmission Date: 20080703
  Serious: Yes (Hospitalization)
  Sender: FDA-Public Use
  Company Number: PHHY2008JP00971

PATIENT
  Age: 2 Year
  Sex: Female

DRUGS (3)
  1. DIOVAN [Suspect]
     Dosage: 80 MG, 4 TIMES
     Route: 048
     Dates: start: 20080114, end: 20080114
  2. DEPAS [Suspect]
     Dosage: 0.5 MG, 8 TIMES
     Route: 048
     Dates: start: 20080114, end: 20080115
  3. LENDORMIN [Suspect]
     Dosage: 0.8 MG, UNK
     Route: 048
     Dates: start: 20080114, end: 20080114

REACTIONS (6)
  - ACCIDENTAL EXPOSURE [None]
  - AGITATION [None]
  - DRUG LEVEL INCREASED [None]
  - DYSSTASIA [None]
  - GAIT DISTURBANCE [None]
  - GASTRIC LAVAGE [None]
